FAERS Safety Report 21475142 (Version 1)
Quarter: 2022Q4

REPORT INFORMATION
  Report Type: Report from Study
  Country: MX (occurrence: MX)
  Receive Date: 20221019
  Receipt Date: 20221019
  Transmission Date: 20230113
  Serious: Yes (Other)
  Sender: FDA-Public Use
  Company Number: MX-NOVARTISPH-NVSC2022MX099280

PATIENT
  Sex: Male
  Weight: 80 kg

DRUGS (1)
  1. TASIGNA [Suspect]
     Active Substance: NILOTINIB
     Indication: Chronic myeloid leukaemia
     Dosage: UNK
     Route: 048

REACTIONS (16)
  - Typhoid fever [Unknown]
  - Diarrhoea [Unknown]
  - Abdominal pain upper [Unknown]
  - Agitation [Recovering/Resolving]
  - Blood glucose abnormal [Unknown]
  - Eating disorder [Unknown]
  - Anger [Unknown]
  - Weight decreased [Unknown]
  - Blood pressure systolic increased [Unknown]
  - Gastritis [Unknown]
  - Pyrexia [Unknown]
  - Headache [Unknown]
  - Dizziness [Unknown]
  - Blood pressure diastolic decreased [Unknown]
  - Blood triglycerides increased [Unknown]
  - Arthritis [Unknown]
